FAERS Safety Report 12832089 (Version 6)
Quarter: 2017Q4

REPORT INFORMATION
  Report Type: Report from Study
  Country: GB (occurrence: GB)
  Receive Date: 20161010
  Receipt Date: 20171120
  Transmission Date: 20180320
  Serious: Yes (Hospitalization, Other)
  Sender: FDA-Public Use
  Company Number: PHFR2015GB000983

PATIENT
  Age: 33 Year
  Sex: Female

DRUGS (1)
  1. GILENYA [Suspect]
     Active Substance: FINGOLIMOD HYDROCHLORIDE
     Indication: MULTIPLE SCLEROSIS
     Dosage: 0.5 MG, QD
     Route: 048
     Dates: start: 20130814, end: 20151117

REACTIONS (21)
  - Escherichia urinary tract infection [Recovered/Resolved]
  - Dizziness [Unknown]
  - Lymphocyte count decreased [Unknown]
  - Diarrhoea [Recovered/Resolved]
  - Hypotension [Recovered/Resolved]
  - Dysuria [Recovered/Resolved]
  - Urinary tract infection [Unknown]
  - Complication associated with device [Recovered/Resolved]
  - Mouth ulceration [Unknown]
  - Diarrhoea [Unknown]
  - Alanine aminotransferase decreased [Unknown]
  - Pollakiuria [Unknown]
  - Hypertonic bladder [Unknown]
  - Syncope [Recovered/Resolved]
  - Hot flush [Unknown]
  - Abdominal pain [Recovered/Resolved]
  - Pyrexia [Recovered/Resolved]
  - Stomatitis [Unknown]
  - Kidney infection [Recovered/Resolved]
  - White blood cell count increased [Unknown]
  - Urinary retention [Recovered/Resolved]

NARRATIVE: CASE EVENT DATE: 20130930
